FAERS Safety Report 4947851-2 (Version None)
Quarter: 2006Q1

REPORT INFORMATION
  Report Type: 
  Country: None (occurrence: None)
  Receive Date: 20060310
  Receipt Date: 20060222
  Transmission Date: 20060701
  Serious: Yes (Other)
  Sender: FDA-Public Use
  Company Number: 8015290

PATIENT
  Sex: Male

DRUGS (8)
  1. KEPPRA [Suspect]
     Indication: EPILEPSY
     Dosage: 2500 MG /D PO
     Route: 048
  2. RIVOTRIL [Concomitant]
  3. DIHYDAN [Concomitant]
  4. URBANYL [Concomitant]
  5. EPITOMAX [Concomitant]
  6. MNESIS [Concomitant]
  7. MOTILIUM /00498201/ [Concomitant]
  8. FORLAX [Concomitant]

REACTIONS (2)
  - LEUKOPENIA [None]
  - THROMBOCYTOPENIA [None]
